FAERS Safety Report 5958921-4 (Version None)
Quarter: 2008Q4

REPORT INFORMATION
  Report Type: 
  Country: None (occurrence: None)
  Receive Date: 20081118
  Receipt Date: 20081107
  Transmission Date: 20090506
  Serious: Yes (Life-Threatening, Hospitalization)
  Sender: FDA-Public Use
  Company Number: 238380J08USA

PATIENT
  Age: 52 Year
  Sex: Female

DRUGS (12)
  1. REBIF [Suspect]
     Indication: MULTIPLE SCLEROSIS
     Dosage: 44 MCG, 3 IN 1 WEEKS, SUBCUTANEOUS, 44 MCG, 3 IN 1 WEEKS, SUBCUTANEOUS
     Route: 058
     Dates: start: 20061206, end: 20080101
  2. REBIF [Suspect]
     Indication: MULTIPLE SCLEROSIS
     Dosage: 44 MCG, 3 IN 1 WEEKS, SUBCUTANEOUS, 44 MCG, 3 IN 1 WEEKS, SUBCUTANEOUS
     Route: 058
     Dates: start: 20080901, end: 20081001
  3. METFORMIN HCL [Concomitant]
  4. AVANDIA (ROSIGLITZONE MALEATE) [Concomitant]
  5. ZOCOR (ALL OTHER THERAPEUTIC PRODUCTS) [Concomitant]
  6. SOMA [Concomitant]
  7. PERCOCET [Concomitant]
  8. UNSPECIFIED ANTI-HYPERTENSIVE (ANTIHYPERTENSIVES) [Concomitant]
  9. DOXEPIN HCL [Concomitant]
  10. CARAFATE [Concomitant]
  11. PROTONIX [Concomitant]
  12. PLAVIX [Concomitant]

REACTIONS (6)
  - CARDIAC FAILURE CONGESTIVE [None]
  - HAEMOGLOBIN DECREASED [None]
  - LOSS OF CONSCIOUSNESS [None]
  - MUSCLE SPASMS [None]
  - RENAL FAILURE [None]
  - RESPIRATORY FAILURE [None]
